FAERS Safety Report 6955724-9 (Version None)
Quarter: 2010Q3

REPORT INFORMATION
  Report Type: 
  Country: None (occurrence: None)
  Receive Date: 20100830
  Receipt Date: 20100819
  Transmission Date: 20110219
  Serious: Yes (Hospitalization)
  Sender: FDA-Public Use
  Company Number: JP-ROCHE-715855

PATIENT
  Sex: Female
  Weight: 60 kg

DRUGS (6)
  1. ACTEMRA [Suspect]
     Indication: RHEUMATOID ARTHRITIS
     Dosage: FORM: INJECTION, DRUG DISCONTINUED.
     Route: 041
     Dates: start: 20091129, end: 20100419
  2. METHOTREXATE [Concomitant]
     Dosage: FORM: PERORAL AGENT.
     Route: 048
     Dates: start: 20070630
  3. PREDNISOLONE [Concomitant]
     Route: 048
     Dates: start: 20070530
  4. ZANTAC [Concomitant]
     Route: 048
     Dates: start: 20070509
  5. LOXONIN [Concomitant]
     Route: 048
     Dates: start: 20080515, end: 20090914
  6. FOLIAMIN [Concomitant]
     Route: 048
     Dates: start: 20070827

REACTIONS (1)
  - VERTIGO [None]
